FAERS Safety Report 11987943 (Version 1)
Quarter: 2016Q1

REPORT INFORMATION
  Report Type: Spontaneous
  Country: GB (occurrence: GB)
  Receive Date: 20160202
  Receipt Date: 20160202
  Transmission Date: 20160526
  Serious: Yes (Other)
  Sender: FDA-Public Use
  Company Number: PHHY2016GB010099

PATIENT
  Age: 12 Year
  Sex: Male
  Weight: 35 kg

DRUGS (2)
  1. ELVANSE [Suspect]
     Active Substance: LISDEXAMFETAMINE DIMESYLATE
     Indication: ATTENTION DEFICIT/HYPERACTIVITY DISORDER
     Dosage: 30 MG,
     Route: 048
     Dates: start: 20151221, end: 20151221
  2. METHYLPHENIDATE HYDROCHLORIDE. [Suspect]
     Active Substance: METHYLPHENIDATE HYDROCHLORIDE
     Indication: ATTENTION DEFICIT/HYPERACTIVITY DISORDER
     Route: 048

REACTIONS (8)
  - Activities of daily living impaired [Unknown]
  - Oromandibular dystonia [Recovered/Resolved]
  - Anxiety [Recovered/Resolved]
  - Mania [Unknown]
  - Condition aggravated [Recovered/Resolved]
  - Psychomotor hyperactivity [Recovered/Resolved]
  - Hallucination, visual [Recovered/Resolved with Sequelae]
  - Dyskinesia [Recovered/Resolved]

NARRATIVE: CASE EVENT DATE: 20151221
